FAERS Safety Report 24163784 (Version 1)
Quarter: 2024Q3

REPORT INFORMATION
  Report Type: Spontaneous
  Country: GB (occurrence: GB)
  Receive Date: 20240801
  Receipt Date: 20240801
  Transmission Date: 20241017
  Serious: Yes (Other)
  Sender: TEVA
  Company Number: GB-MHRA-MIDB-12cf47a7-7140-475f-b81e-a5d07502392c

PATIENT
  Age: 33 Year
  Sex: Male

DRUGS (9)
  1. LEVOFLOXACIN [Suspect]
     Active Substance: LEVOFLOXACIN
     Indication: Product used for unknown indication
     Dosage: MORNING
     Route: 065
  2. BEDAQUILINE [Concomitant]
     Active Substance: BEDAQUILINE
     Dosage: BEDAQUILINE 100MG TABLETS 400MG AT TEATIME UNTIL 16/11/23 THEN 200MG THREE TIMES A WEEK ON MONDAY...
  3. LANSOPRAZOLE [Concomitant]
     Active Substance: LANSOPRAZOLE
     Dosage: MORNING
  4. DEXAMETHASONE [Concomitant]
     Active Substance: DEXAMETHASONE
     Dosage: DEXAMETASONE 4MG TWICE A DAY MORNING AND LUNCHTIME FOR 4 DAYS THEN 4MG MORNING FOR 7 DAYS THEN 2M...
  5. ACETAMINOPHEN [Concomitant]
     Active Substance: ACETAMINOPHEN
     Dosage: 500MG TABLETS. TWO FOUR TIMES A DAY WHEN REQUIRED
  6. CLOFAZIMINE [Suspect]
     Active Substance: CLOFAZIMINE
     Dosage: 50MG CAPSULES TWO MORNING
     Route: 065
  7. LINEZOLID [Suspect]
     Active Substance: LINEZOLID
     Dosage: MORNING
     Route: 065
  8. CYCLOSERINE [Concomitant]
     Active Substance: CYCLOSERINE
  9. PYRIDOXINE [Concomitant]
     Active Substance: PYRIDOXINE
     Dosage: ONE TWICE A DAY MORNING AND TEATIME

REACTIONS (2)
  - Liver function test abnormal [Unknown]
  - Drug-induced liver injury [Recovered/Resolved]
